FAERS Safety Report 13343287 (Version 1)
Quarter: 2017Q1

REPORT INFORMATION
  Report Type: Spontaneous
  Country: US (occurrence: US)
  Receive Date: 20170316
  Receipt Date: 20170316
  Transmission Date: 20170428
  Serious: Yes (Hospitalization, Other)
  Sender: FDA-Public Use
  Company Number: US-PFIZER INC-2017102408

PATIENT
  Age: 78 Year
  Sex: Female

DRUGS (1)
  1. METHYLPREDNISOLONE SODIUM SUCCINATE. [Suspect]
     Active Substance: METHYLPREDNISOLONE SODIUM SUCCINATE
     Dosage: UNK
     Dates: start: 20120912

REACTIONS (6)
  - Transmission of an infectious agent via product [Recovered/Resolved]
  - Exserohilum infection [Recovered/Resolved]
  - Product contamination [Unknown]
  - Arachnoiditis [Recovered/Resolved]
  - Extradural abscess [Recovered/Resolved]
  - Dural abscess [Recovered/Resolved]

NARRATIVE: CASE EVENT DATE: 2012
